FAERS Safety Report 4929045-X (Version None)
Quarter: 2006Q1

REPORT INFORMATION
  Report Type: 
  Country: None (occurrence: None)
  Receive Date: 20060301
  Receipt Date: 20051018
  Transmission Date: 20060701
  Serious: Yes (Hospitalization)
  Sender: FDA-Public Use
  Company Number: GB-MERCK-0510GBR00140

PATIENT
  Age: 57 Year
  Sex: Male
  Weight: 70 kg

DRUGS (5)
  1. VIOXX [Suspect]
     Route: 048
     Dates: start: 20010501, end: 20030802
  2. VIOXX [Suspect]
     Route: 048
     Dates: start: 20030806, end: 20031001
  3. VIOXX [Suspect]
     Route: 048
     Dates: start: 19990101, end: 20010201
  4. ATENOLOL [Concomitant]
     Route: 048
     Dates: start: 20030806, end: 20040201
  5. ATENOLOL [Concomitant]
     Route: 048
     Dates: start: 20040223

REACTIONS (30)
  - ABDOMINAL PAIN [None]
  - ACUTE MYOCARDIAL INFARCTION [None]
  - BLOOD CREATININE INCREASED [None]
  - BLOOD PRESSURE INCREASED [None]
  - BLOOD UREA INCREASED [None]
  - BURNING SENSATION [None]
  - CARDIAC MURMUR [None]
  - CHEST PAIN [None]
  - CONJUNCTIVITIS VIRAL [None]
  - DIZZINESS [None]
  - DYSPEPSIA [None]
  - DYSPNOEA [None]
  - ESSENTIAL TREMOR [None]
  - EXERCISE TOLERANCE DECREASED [None]
  - EYE HAEMORRHAGE [None]
  - HEAT RASH [None]
  - HYPERHIDROSIS [None]
  - HYPERLIPIDAEMIA [None]
  - LEFT VENTRICULAR FAILURE [None]
  - LIMB DISCOMFORT [None]
  - LIP DISCOLOURATION [None]
  - MALAISE [None]
  - NECK PAIN [None]
  - OEDEMA PERIPHERAL [None]
  - PAIN IN EXTREMITY [None]
  - PARAESTHESIA [None]
  - PHARYNGOLARYNGEAL PAIN [None]
  - PLATELET AGGREGATION INCREASED [None]
  - PYREXIA [None]
  - VENTRICULAR DYSFUNCTION [None]
